FAERS Safety Report 16968379 (Version 1)
Quarter: 2019Q4

REPORT INFORMATION
  Report Type: Spontaneous
  Country: BR (occurrence: BR)
  Receive Date: 20191028
  Receipt Date: 20191028
  Transmission Date: 20200122
  Serious: Yes (Other)
  Sender: FDA-Public Use
  Company Number: BR-ABBVIE-19K-020-2974574-00

PATIENT
  Age: 7 Year
  Sex: Female
  Weight: 25 kg

DRUGS (2)
  1. AVAMYS [Concomitant]
     Active Substance: FLUTICASONE FUROATE
     Indication: RHINITIS
     Dosage: ONCE PER DAY BEFORE SLEEP
     Dates: start: 2018
  2. LUPRON DEPOT [Suspect]
     Active Substance: LEUPROLIDE ACETATE
     Indication: PRECOCIOUS PUBERTY
     Route: 030
     Dates: start: 2018

REACTIONS (5)
  - Product preparation issue [Unknown]
  - Hormone level abnormal [Unknown]
  - Asthmatic crisis [Unknown]
  - Product storage error [Unknown]
  - Incorrect dose administered [Unknown]

NARRATIVE: CASE EVENT DATE: 2017
